FAERS Safety Report 17088113 (Version 2)
Quarter: 2019Q4

REPORT INFORMATION
  Report Type: Spontaneous
  Country: JP (occurrence: JP)
  Receive Date: 20191128
  Receipt Date: 20191206
  Transmission Date: 20200122
  Serious: Yes (Death, Other)
  Sender: FDA-Public Use
  Company Number: JP-PFIZER INC-2019510753

PATIENT
  Age: 9 Decade
  Sex: Female

DRUGS (2)
  1. MEROPENEM. [Suspect]
     Active Substance: MEROPENEM
     Indication: SEPSIS
  2. MEROPENEM. [Suspect]
     Active Substance: MEROPENEM
     Indication: CHOLECYSTITIS
     Dosage: UNK
     Route: 041

REACTIONS (1)
  - Death [Fatal]
